FAERS Safety Report 7075333-3 (Version None)
Quarter: 2010Q4

REPORT INFORMATION
  Report Type: 
  Country: None (occurrence: None)
  Receive Date: 20101030
  Receipt Date: 20100831
  Transmission Date: 20110411
  Serious: No
  Sender: FDA-Public Use
  Company Number: US-WYE-H17122010

PATIENT
  Age: 53 Year
  Sex: Female
  Weight: 68.1 kg

DRUGS (2)
  1. ADVIL PM [Suspect]
     Indication: ARTHRALGIA
     Route: 048
     Dates: start: 20100801, end: 20100801
  2. ADVIL PM [Suspect]
     Indication: BACK PAIN

REACTIONS (2)
  - DRUG INEFFECTIVE [None]
  - OVERDOSE [None]
